FAERS Safety Report 25134380 (Version 1)
Quarter: 2025Q1

REPORT INFORMATION
  Report Type: Spontaneous
  Country: ES (occurrence: ES)
  Receive Date: 20250328
  Receipt Date: 20250328
  Transmission Date: 20250408
  Serious: Yes (Hospitalization, Other)
  Sender: AUROBINDO
  Company Number: ES-AEMPS-1647290

PATIENT
  Age: 64 Year
  Sex: Male

DRUGS (5)
  1. HYDROCHLOROTHIAZIDE [Suspect]
     Active Substance: HYDROCHLOROTHIAZIDE
     Indication: Hypertension
     Dosage: 12.5 MILLIGRAM, ONCE A DAY
     Route: 048
     Dates: start: 20250213, end: 20250219
  2. FUROSEMIDE [Suspect]
     Active Substance: FUROSEMIDE
     Indication: Cardiac failure
     Dosage: 40 MILLIGRAM, 3 TIMES A DAY
     Route: 048
     Dates: start: 20250209
  3. SPIRONOLACTONE [Suspect]
     Active Substance: SPIRONOLACTONE
     Indication: Hypertension
     Dosage: 100 MILLIGRAM, TWO TIMES A DAY
     Route: 048
     Dates: start: 20250213, end: 20250219
  4. VALSARTAN [Suspect]
     Active Substance: VALSARTAN
     Indication: Cardiac failure
     Dosage: 160 MILLIGRAM, TWO TIMES A DAY
     Route: 048
     Dates: start: 20250213, end: 20250219
  5. FLECAINIDE ACETATE [Concomitant]
     Active Substance: FLECAINIDE ACETATE
     Indication: Product used for unknown indication
     Route: 048
     Dates: start: 20230905, end: 20250226

REACTIONS (3)
  - Acute kidney injury [Recovered/Resolved]
  - Hyperkalaemia [Recovered/Resolved]
  - Bradycardia [Recovered/Resolved]

NARRATIVE: CASE EVENT DATE: 20250219
